FAERS Safety Report 7554547-X (Version None)
Quarter: 2011Q2

REPORT INFORMATION
  Report Type: 
  Country: None (occurrence: None)
  Receive Date: 20110617
  Receipt Date: 20110607
  Transmission Date: 20111010
  Serious: Yes (Other)
  Sender: FDA-Public Use
  Company Number: US-ROCHE-749854

PATIENT
  Sex: Female
  Weight: 72.6 kg

DRUGS (2)
  1. ACCUTANE [Suspect]
     Indication: ACNE
     Route: 065
     Dates: start: 19960101
  2. ACCUTANE [Suspect]
     Route: 065
     Dates: start: 19970101, end: 19980101

REACTIONS (11)
  - INTESTINAL OBSTRUCTION [None]
  - RECTAL PROLAPSE [None]
  - OSTEOARTHRITIS [None]
  - ASPARTATE AMINOTRANSFERASE INCREASED [None]
  - DIVERTICULITIS [None]
  - COLITIS ULCERATIVE [None]
  - INFLAMMATORY BOWEL DISEASE [None]
  - DEPRESSION [None]
  - GASTROINTESTINAL INJURY [None]
  - IRRITABLE BOWEL SYNDROME [None]
  - ALANINE AMINOTRANSFERASE INCREASED [None]
